FAERS Safety Report 24164486 (Version 2)
Quarter: 2024Q3

REPORT INFORMATION
  Report Type: Spontaneous
  Country: BR (occurrence: BR)
  Receive Date: 20240801
  Receipt Date: 20240828
  Transmission Date: 20241016
  Serious: Yes (Other)
  Sender: SANDOZ
  Company Number: BR-002147023-NVSC2024BR135950

PATIENT
  Sex: Female

DRUGS (12)
  1. ALLOPURINOL [Suspect]
     Active Substance: ALLOPURINOL
     Dosage: 1 DOSAGE FORM, QD
     Route: 065
  2. ALLOPURINOL [Suspect]
     Active Substance: ALLOPURINOL
     Indication: Product used for unknown indication
     Dosage: 2 TABLETS A DAY INITIALLY
     Route: 065
  3. KISQALI [Suspect]
     Active Substance: RIBOCICLIB
     Dosage: UNK, OTHER (2 TABLETS PER DAY)
     Route: 065
     Dates: start: 202303
  4. KISQALI [Suspect]
     Active Substance: RIBOCICLIB
     Dosage: 200 UNK, QD (2 TABLETS A DAY IN THE MORNING EVERY 21 DAYS WITH A 7-DAY BREAK)
     Route: 065
  5. KISQALI [Suspect]
     Active Substance: RIBOCICLIB
     Dosage: 3 DOSAGE FORM
     Route: 065
  6. KISQALI [Suspect]
     Active Substance: RIBOCICLIB
     Indication: Breast cancer stage III
     Dosage: UNK
     Route: 065
  7. KISQALI [Suspect]
     Active Substance: RIBOCICLIB
     Dosage: UNK(NEW CYCLE)
     Route: 065
     Dates: start: 20240605, end: 20240626
  8. LETROZOLE [Suspect]
     Active Substance: LETROZOLE
     Indication: Product used for unknown indication
     Dosage: UNK
     Route: 065
  9. ENALAPRIL [Concomitant]
     Active Substance: ENALAPRIL
     Indication: Hypertension
     Dosage: 1 DOSAGE FORM, BID  TABLET TWICE A DAY/MORNING AND EVENING
     Route: 065
  10. EXEMESTANE [Concomitant]
     Active Substance: EXEMESTANE
     Indication: Product used for unknown indication
     Dosage: 1 DOSAGE FORM, QD (1 TABLET A DAY IN THE MORNING)
     Route: 065
  11. HYDROCHLOROTHIAZIDE [Concomitant]
     Active Substance: HYDROCHLOROTHIAZIDE
     Indication: Hypertension
     Dosage: 1 DOSAGE FORM, QD IN THE MORNING)
     Route: 065
  12. OMEPRAZOLE [Concomitant]
     Active Substance: OMEPRAZOLE
     Indication: Product used for unknown indication
     Dosage: 1 DOSAGE FORM, QD (1 TABLET ON AN EMPTY STOMACH IN THE MORNING)
     Route: 065

REACTIONS (18)
  - Breast cancer stage IV [Unknown]
  - Metastases to pelvis [Unknown]
  - Metastases to spine [Unknown]
  - Eye irritation [Unknown]
  - Dry eye [Recovering/Resolving]
  - Eye inflammation [Unknown]
  - Lacrimation increased [Recovering/Resolving]
  - Eyelid irritation [Unknown]
  - Dry skin [Recovering/Resolving]
  - Dehydration [Not Recovered/Not Resolved]
  - Pelvic pain [Unknown]
  - Spinal pain [Unknown]
  - Anaemia [Unknown]
  - Decreased immune responsiveness [Unknown]
  - Eyelid skin dryness [Recovering/Resolving]
  - Dry throat [Recovering/Resolving]
  - Eye pruritus [Recovering/Resolving]
  - Platelet count decreased [Unknown]

NARRATIVE: CASE EVENT DATE: 20230101
